FAERS Safety Report 7760623-9 (Version None)
Quarter: 2011Q3

REPORT INFORMATION
  Report Type: 
  Country: None (occurrence: None)
  Receive Date: 20110825
  Receipt Date: 20110620
  Transmission Date: 20111222
  Serious: No
  Sender: FDA-Public Use
  Company Number: 326603

PATIENT
  Age: 89 Year
  Sex: Male

DRUGS (1)
  1. VICTOZA [Suspect]
     Indication: OVERWEIGHT
     Dosage: 1.8 MG, QD, SUBCUTANEOUS
     Route: 058
     Dates: start: 20110412

REACTIONS (3)
  - INCORRECT DOSE ADMINISTERED [None]
  - VOMITING [None]
  - NAUSEA [None]
